FAERS Safety Report 16871367 (Version 1)
Quarter: 2019Q4

REPORT INFORMATION
  Report Type: Spontaneous
  Country: NL (occurrence: NL)
  Receive Date: 20191001
  Receipt Date: 20191001
  Transmission Date: 20200122
  Serious: Yes (Hospitalization)
  Sender: FDA-Public Use
  Company Number: NL-TEVA-2019-NL-1114682

PATIENT
  Age: 21 Year
  Sex: Female
  Weight: 123 kg

DRUGS (6)
  1. LEVETIRACETAM TABLET FO  500MG [Concomitant]
     Active Substance: LEVETIRACETAM
     Dosage: 500 MILLIGRAM PER EVERY 12 HOURS 2 X PER DAY 1 TABLET
     Dates: start: 20190815
  2. MIDAZOLAM NEUSSPRAY [Concomitant]
     Dosage: 1 DOSAGE FORM IF NECESSARY 1 TIME 4 PUFFS (2 IN EACH NOSTRIL)
     Dates: start: 20190812
  3. IBUPROFEN TABLET 200MG [Concomitant]
     Dosage: 200 MILLIGRAM PER EVERY 8 HOURS 3 TIMES A DAY 1 TABLET
     Dates: start: 20190515
  4. IBUPROFEN TABLET 400MG [Concomitant]
     Active Substance: IBUPROFEN
     Dosage: 400 MILLIGRAM PER EVERY 8 HOURS 3 TIMES A DAY 1 TABLET
     Dates: start: 20131024
  5. MIRTAZAPINE. [Suspect]
     Active Substance: MIRTAZAPINE
     Indication: DEPRESSION
     Dosage: 1 DOSAGE FORM 1X PER DAY 0,5 TABLET
     Dates: start: 20190808, end: 201908
  6. NAPROXEN TABLET 500MG [Concomitant]
     Active Substance: NAPROXEN
     Dosage: 500 MILLIGRAM PER EVERY 12 HOURS IF NECESSARY, 1 TABLET TWICE A DAY
     Dates: start: 20140813

REACTIONS (1)
  - Epilepsy [Recovering/Resolving]

NARRATIVE: CASE EVENT DATE: 201908
